FAERS Safety Report 8448774-7 (Version None)
Quarter: 2012Q2

REPORT INFORMATION
  Report Type: 
  Country: None (occurrence: None)
  Receive Date: 20120619
  Receipt Date: 20120611
  Transmission Date: 20120825
  Serious: Yes (Hospitalization)
  Sender: FDA-Public Use
  Company Number: US-BAXTER-2012BAX004938

PATIENT
  Sex: Male
  Weight: 74.7 kg

DRUGS (1)
  1. DIANEAL [Suspect]
     Indication: PERITONEAL DIALYSIS
     Route: 033
     Dates: start: 20100621

REACTIONS (4)
  - MALAISE [None]
  - CATHETER SITE ERYTHEMA [None]
  - URINARY TRACT INFECTION [None]
  - BODY TEMPERATURE INCREASED [None]
